FAERS Safety Report 18963423 (Version 2)
Quarter: 2021Q2

REPORT INFORMATION
  Report Type: Spontaneous
  Country: US (occurrence: US)
  Receive Date: 20210303
  Receipt Date: 20210405
  Transmission Date: 20210717
  Serious: Yes (Life-Threatening, Other)
  Sender: FDA-Public Use
  Company Number: US-PFIZER INC-2021200638

PATIENT
  Age: 14 Year
  Sex: Male

DRUGS (1)
  1. SIROLIMUS. [Suspect]
     Active Substance: SIROLIMUS
     Dosage: UNK

REACTIONS (5)
  - Therapeutic response unexpected [Unknown]
  - Gastrointestinal haemorrhage [Unknown]
  - Treatment noncompliance [Unknown]
  - Post embolisation syndrome [Unknown]
  - Varices oesophageal [Unknown]
